FAERS Safety Report 6144735-1 (Version None)
Quarter: 2009Q2

REPORT INFORMATION
  Report Type: 
  Country: None (occurrence: None)
  Receive Date: 20090401
  Receipt Date: 20090318
  Transmission Date: 20091009
  Serious: Yes (Other)
  Sender: FDA-Public Use
  Company Number: DSA_33121_2009

PATIENT
  Age: 65 Year
  Sex: Male

DRUGS (5)
  1. CARDIZEM [Suspect]
     Indication: HYPERTENSION
     Dosage: (120 MG QD ORAL)
     Route: 048
     Dates: start: 19990101
  2. CARDIZEM [Suspect]
     Indication: TACHYCARDIA
     Dosage: (120 MG QD ORAL)
     Route: 048
     Dates: start: 19990101
  3. DORZOLAMIDE [Concomitant]
  4. AAS [Concomitant]
  5. LOSARTAN POTASSIUM [Concomitant]

REACTIONS (3)
  - BLOOD CHOLESTEROL INCREASED [None]
  - BLOOD PRESSURE INCREASED [None]
  - SOMNOLENCE [None]
